FAERS Safety Report 13064219 (Version 1)
Quarter: 2016Q4

REPORT INFORMATION
  Report Type: Spontaneous
  Country: US (occurrence: US)
  Receive Date: 20161223
  Receipt Date: 20161223
  Transmission Date: 20170207
  Serious: Yes (Disabling)
  Sender: FDA-Public Use
  Company Number: None

PATIENT
  Age: 66 Year
  Sex: Male
  Weight: 120.6 kg

DRUGS (8)
  1. LOW DOSE ASPIRIN [Concomitant]
     Active Substance: ASPIRIN
  2. LATERIS [Concomitant]
  3. QUETIAPINE ER [Suspect]
     Active Substance: QUETIAPINE
     Dosage: ?          QUANTITY:90 TABLET(S);?
     Route: 048
     Dates: start: 20161221, end: 20161222
  4. CHLOROTHIADONE [Concomitant]
  5. CYMBALTA [Concomitant]
     Active Substance: DULOXETINE HYDROCHLORIDE
  6. LIPITOR [Concomitant]
     Active Substance: ATORVASTATIN CALCIUM
  7. ADCIRCA [Concomitant]
     Active Substance: TADALAFIL
  8. DIOVAN [Concomitant]
     Active Substance: VALSARTAN

REACTIONS (4)
  - Heart rate increased [None]
  - Product substitution issue [None]
  - Heart rate irregular [None]
  - Dizziness [None]

NARRATIVE: CASE EVENT DATE: 20161222
